FAERS Safety Report 4847181-3 (Version None)
Quarter: 2005Q4

REPORT INFORMATION
  Report Type: 
  Country: None (occurrence: None)
  Receive Date: 20051207
  Receipt Date: 20051005
  Transmission Date: 20060501
  Serious: Yes (Hospitalization, Disabling)
  Sender: FDA-Public Use
  Company Number: US-MERCK-0510USA04737

PATIENT
  Age: 54 Year
  Sex: Male
  Weight: 125 kg

DRUGS (1)
  1. VIOXX [Suspect]
     Indication: FACET JOINT SYNDROME
     Route: 048
     Dates: start: 20010101, end: 20020409

REACTIONS (4)
  - ARTERIAL OCCLUSIVE DISEASE [None]
  - CARDIAC DISORDER [None]
  - CHEST PAIN [None]
  - MYOCARDIAL INFARCTION [None]
